FAERS Safety Report 8009361-8 (Version None)
Quarter: 2011Q4

REPORT INFORMATION
  Report Type: 
  Country: None (occurrence: None)
  Receive Date: 20111227
  Receipt Date: 20111223
  Transmission Date: 20120403
  Serious: Yes (Hospitalization)
  Sender: FDA-Public Use
  Company Number: US-B.I. PHARMACEUTICALS,INC./RIDGEFIELD-2011-BP-28704BP

PATIENT
  Sex: Male

DRUGS (4)
  1. PRADAXA [Suspect]
     Dosage: 300 MG
     Route: 048
     Dates: start: 20111201
  2. LANOXIN [Concomitant]
     Indication: CARDIOVASCULAR DISORDER
     Dosage: 0.125 MG
     Route: 048
  3. DILTIAZEM HCL [Concomitant]
     Indication: CARDIOVASCULAR DISORDER
     Dosage: 180 MG
     Route: 048
  4. PRADAXA [Suspect]
     Indication: ATRIAL FIBRILLATION
     Dosage: 300 MG
     Route: 048
     Dates: start: 20111001, end: 20111101

REACTIONS (2)
  - HAEMATURIA [None]
  - URINARY BLADDER POLYP [None]
